FAERS Safety Report 10307158 (Version 2)
Quarter: 2014Q3

REPORT INFORMATION
  Report Type: Spontaneous
  Country: DE (occurrence: DE)
  Receive Date: 20140716
  Receipt Date: 20140716
  Transmission Date: 20150326
  Serious: Yes (Other)
  Sender: FDA-Public Use
  Company Number: DE-ROCHE-1425992

PATIENT
  Age: 49 Year
  Sex: Female
  Weight: 98 kg

DRUGS (9)
  1. PERJETA [Suspect]
     Active Substance: PERTUZUMAB
     Indication: BREAST CANCER METASTATIC
     Dosage: INITAL DOSE
     Route: 042
     Dates: start: 20140402, end: 20140402
  2. HERCEPTIN [Concomitant]
     Active Substance: TRASTUZUMAB
     Indication: BREAST CANCER METASTATIC
     Route: 042
     Dates: start: 20140521
  3. SOLU-DECORTIN [Concomitant]
     Active Substance: PREDNISOLONE SODIUM SUCCINATE
  4. DEXAMETHASON [Concomitant]
     Active Substance: DEXAMETHASONE
     Route: 042
     Dates: start: 20140402, end: 20140521
  5. TAVEGIL [Concomitant]
     Active Substance: CLEMASTINE FUMARATE
     Dosage: ONE ADDITIONAL AMPOULE
     Route: 042
     Dates: start: 20140521, end: 20140521
  6. KEVATRIL [Concomitant]
     Active Substance: GRANISETRON HYDROCHLORIDE
     Route: 042
  7. TAVEGIL [Concomitant]
     Active Substance: CLEMASTINE FUMARATE
     Route: 042
     Dates: start: 20140402, end: 20140521
  8. PERJETA [Suspect]
     Active Substance: PERTUZUMAB
     Route: 042
     Dates: start: 20140423, end: 20140521
  9. DOCETAXEL [Suspect]
     Active Substance: DOCETAXEL
     Indication: BREAST CANCER METASTATIC
     Route: 042
     Dates: start: 20140402, end: 20140423

REACTIONS (5)
  - Dermatitis allergic [Recovered/Resolved]
  - Dyspnoea [Unknown]
  - Pneumonia [Unknown]
  - General physical health deterioration [Unknown]
  - Tachycardia [Recovered/Resolved]

NARRATIVE: CASE EVENT DATE: 20140423
